FAERS Safety Report 25948065 (Version 1)
Quarter: 2025Q4

REPORT INFORMATION
  Report Type: Report from Study
  Country: US (occurrence: US)
  Receive Date: 20251022
  Receipt Date: 20251022
  Transmission Date: 20260118
  Serious: Yes (Hospitalization)
  Sender: OTSUKA
  Company Number: US-MMM-Otsuka-OQ7SCG69

PATIENT
  Sex: Female

DRUGS (1)
  1. TOLVAPTAN [Suspect]
     Active Substance: TOLVAPTAN
     Indication: Congenital cystic kidney disease
     Dosage: UNK
     Route: 065

REACTIONS (1)
  - Foot operation [Unknown]

NARRATIVE: CASE EVENT DATE: 20251017
